FAERS Safety Report 6445060-1 (Version None)
Quarter: 2009Q4

REPORT INFORMATION
  Report Type: 
  Country: None (occurrence: None)
  Receive Date: 20091118
  Receipt Date: 20091106
  Transmission Date: 20100525
  Serious: Yes (Hospitalization, Other)
  Sender: FDA-Public Use
  Company Number: US-PFIZER INC-2009281146

PATIENT
  Age: 67 Year
  Sex: Male

DRUGS (5)
  1. SUTENT [Suspect]
     Dosage: 50 MG, 1X/DAY
     Dates: start: 20090812
  2. POTASSIUM CHLORIDE [Concomitant]
     Dosage: 30 MG, 1X/DAY
  3. MAGNESIUM SULFATE [Concomitant]
     Dosage: 125 MG, 1X/DAY
  4. LIPITOR [Concomitant]
     Dosage: 40 MG, 1X/DAY
  5. NORVASC [Concomitant]
     Dosage: 10 MG, 1X/DAY

REACTIONS (14)
  - ABDOMINAL DISTENSION [None]
  - DEHYDRATION [None]
  - DIARRHOEA [None]
  - ERYTHEMA [None]
  - FLATULENCE [None]
  - HYPERTENSION [None]
  - ILEUS [None]
  - LOOSE TOOTH [None]
  - MYALGIA [None]
  - PAIN IN EXTREMITY [None]
  - PYREXIA [None]
  - SKIN EXFOLIATION [None]
  - SWELLING [None]
  - URINARY TRACT INFECTION [None]
